FAERS Safety Report 24349700 (Version 1)
Quarter: 2024Q3

REPORT INFORMATION
  Report Type: Spontaneous
  Country: US (occurrence: None)
  Receive Date: 20240920
  Receipt Date: 20240920
  Transmission Date: 20241016
  Serious: Yes (Hospitalization)
  Sender: Public
  Company Number: None

PATIENT
  Sex: Female

DRUGS (2)
  1. BRAFTOVI [Suspect]
     Active Substance: ENCORAFENIB
     Indication: Malignant melanoma
     Dosage: 450MG ONCE DAILY ORAL?
     Route: 048
     Dates: start: 202406
  2. MEKTOVI [Suspect]
     Active Substance: BINIMETINIB
     Indication: Malignant melanoma
     Dosage: 45MG TWICE DAILY ORAL
     Route: 048
     Dates: start: 202406

REACTIONS (3)
  - Pain [None]
  - Vomiting [None]
  - Meningitis [None]
